FAERS Safety Report 5217058-2 (Version None)
Quarter: 2007Q1

REPORT INFORMATION
  Report Type: 
  Country: None (occurrence: None)
  Receive Date: 20070124
  Receipt Date: 20070115
  Transmission Date: 20070707
  Serious: Yes (Other)
  Sender: FDA-Public Use
  Company Number: BR-ROCHE-478762

PATIENT
  Age: 52 Year
  Sex: Male
  Weight: 96 kg

DRUGS (2)
  1. RIVOTRIL [Suspect]
     Indication: PANIC ATTACK
     Dosage: OTHER INDICATION: ANXIETY
     Route: 048
     Dates: start: 20060815, end: 20070111
  2. RIVOTRIL [Suspect]
     Route: 048
     Dates: start: 20070115

REACTIONS (3)
  - DRUG WITHDRAWAL SYNDROME [None]
  - HYPERTENSION [None]
  - INSOMNIA [None]
